FAERS Safety Report 15985023 (Version 1)
Quarter: 2019Q1

REPORT INFORMATION
  Report Type: Report from Study
  Country: RU (occurrence: RU)
  Receive Date: 20190220
  Receipt Date: 20190220
  Transmission Date: 20190418
  Serious: Yes (Life-Threatening, Hospitalization, Disabling)
  Sender: FDA-Public Use
  Company Number: RU-SA-2017SA038801

PATIENT
  Age: 69 Year
  Sex: Male
  Weight: 81 kg

DRUGS (2)
  1. CABAZITAXEL [Suspect]
     Active Substance: CABAZITAXEL
     Indication: PROSTATE CANCER METASTATIC
     Dosage: UNK UNK,QCY
     Route: 042
     Dates: start: 20170120, end: 20170120
  2. CABAZITAXEL [Suspect]
     Active Substance: CABAZITAXEL
     Dosage: 50 MG,QCY
     Route: 042
     Dates: start: 20170210, end: 20170210

REACTIONS (4)
  - Constipation [Recovered/Resolved]
  - Perineal cellulitis [Recovered/Resolved with Sequelae]
  - Hypotension [Recovered/Resolved]
  - Abdominal pain [Recovered/Resolved]

NARRATIVE: CASE EVENT DATE: 20170218
